FAERS Safety Report 7548490-X (Version None)
Quarter: 2011Q2

REPORT INFORMATION
  Report Type: 
  Country: None (occurrence: None)
  Receive Date: 20110608
  Receipt Date: 20110608
  Transmission Date: 20111010
  Serious: Yes (Hospitalization)
  Sender: FDA-Public Use
  Company Number: 2011-1565

PATIENT
  Sex: Female

DRUGS (11)
  1. TRIMIPRAMINE MALEATE [Concomitant]
  2. MADOPAR (MADOPAR 00349201) [Concomitant]
  3. SEROQUEL PROLONG (QUETIAPINE) [Concomitant]
  4. TASMAR (TOLCAPONE) [Concomitant]
  5. PANTOPRAZOLE SODIUM [Concomitant]
  6. DOMPERIDONE (DOMPERIDONE) [Concomitant]
  7. MADOPAR LT (MADOPAR /0349201/ [Concomitant]
  8. RIVOTRIL(CLONAZEPAM) [Concomitant]
  9. APO-GO AMPOULES (APO-GO) (APOMORPHINE HYDROCHLORIDE) (APOMORPHINE HYDR [Suspect]
     Indication: PARKINSON'S DISEASE
     Dosage: 5.5 MG/HR/16HR/DAY (NOT REPORTED, CONTINUOUS (07:00 TO 23:00 PER DAY))
     Dates: start: 20060301, end: 20110427
  10. LEVOCOMP REATARD (SINEMET) [Concomitant]
  11. FOLIC ACID [Concomitant]

REACTIONS (2)
  - INFUSION SITE NECROSIS [None]
  - INFUSION SITE MASS [None]
